FAERS Safety Report 17870252 (Version 1)
Quarter: 2020Q2

REPORT INFORMATION
  Report Type: Report from Study
  Country: US (occurrence: US)
  Receive Date: 20200608
  Receipt Date: 20200608
  Transmission Date: 20200714
  Serious: Yes (Other)
  Sender: FDA-Public Use
  Company Number: US-COVIS PHARMA B.V.-2020COV00221

PATIENT
  Sex: Female

DRUGS (11)
  1. CELEBREX [Suspect]
     Active Substance: CELECOXIB
  2. DULOXETINE. [Suspect]
     Active Substance: DULOXETINE
  3. ATENOLOL. [Suspect]
     Active Substance: ATENOLOL
  4. PRILOSEC [Suspect]
     Active Substance: OMEPRAZOLE MAGNESIUM
  5. ASPIRIN EC [Suspect]
     Active Substance: ASPIRIN
  6. UNSPECIFIED SELECTIVE SEROTONIN REUPTAKE INHIBITORS (SSRI) [Suspect]
     Active Substance: UNSPECIFIED INGREDIENT
  7. CRANBERRY. [Suspect]
     Active Substance: CRANBERRY
  8. RYTARY [Suspect]
     Active Substance: CARBIDOPA\LEVODOPA
  9. NUPLAZID [Suspect]
     Active Substance: PIMAVANSERIN TARTRATE
     Indication: PARKINSON^S DISEASE
     Dosage: 34 MG, 1X/DAY
     Route: 048
  10. MYRBETRIQ [Suspect]
     Active Substance: MIRABEGRON
  11. TURMERIC [Suspect]
     Active Substance: HERBALS\TURMERIC

REACTIONS (4)
  - Blood pressure decreased [Unknown]
  - Increased tendency to bruise [Unknown]
  - Loss of consciousness [Unknown]
  - Presyncope [Unknown]
